FAERS Safety Report 25143959 (Version 2)
Quarter: 2025Q3

REPORT INFORMATION
  Report Type: Spontaneous
  Country: US (occurrence: US)
  Receive Date: 20250401
  Receipt Date: 20250803
  Transmission Date: 20251021
  Serious: Yes (Other)
  Sender: ALEXION PHARMACEUTICALS
  Company Number: US-AstraZeneca-CH-00835192A

PATIENT
  Sex: Female

DRUGS (2)
  1. BEVESPI AEROSPHERE [Suspect]
     Active Substance: FORMOTEROL FUMARATE\GLYCOPYRROLATE
     Indication: Product used for unknown indication
     Route: 065
  2. BREZTRI [Suspect]
     Active Substance: BUDESONIDE\FORMOTEROL\GLYCOPYRROLATE
     Indication: Product used for unknown indication
     Route: 065

REACTIONS (9)
  - Glaucoma [Unknown]
  - Choking [Unknown]
  - Dysphonia [Unknown]
  - Dry throat [Unknown]
  - Candida infection [Unknown]
  - Condition aggravated [Unknown]
  - Nervousness [Unknown]
  - Dyspnoea [Unknown]
  - Feeling jittery [Unknown]
